FAERS Safety Report 10576001 (Version 1)
Quarter: 2014Q4

REPORT INFORMATION
  Report Type: Spontaneous
  Country: US (occurrence: US)
  Receive Date: 20141111
  Receipt Date: 20141111
  Transmission Date: 20150529
  Serious: Yes (Other)
  Sender: FDA-Public Use
  Company Number: US-ASTRAZENECA-2014SE83810

PATIENT
  Sex: Female
  Weight: 81.6 kg

DRUGS (4)
  1. PRENATAL VITAMIN WITH IRON [Concomitant]
     Indication: ANAEMIA
     Dosage: DAILY
     Route: 048
  2. IRON LIQUID [Concomitant]
     Indication: ANAEMIA
     Route: 048
     Dates: start: 20131007
  3. NEXIUM [Suspect]
     Active Substance: ESOMEPRAZOLE MAGNESIUM
     Indication: GASTROOESOPHAGEAL REFLUX DISEASE
     Route: 048
  4. NEXIUM [Suspect]
     Active Substance: ESOMEPRAZOLE MAGNESIUM
     Indication: HIATUS HERNIA
     Route: 048

REACTIONS (5)
  - Constipation [Unknown]
  - Incorrect drug administration duration [Unknown]
  - Iron deficiency anaemia [Unknown]
  - Blood iron decreased [Unknown]
  - Platelet disorder [Unknown]

NARRATIVE: CASE EVENT DATE: 201310
